FAERS Safety Report 10482481 (Version 1)
Quarter: 2014Q3

REPORT INFORMATION
  Report Type: Spontaneous
  Country: JP (occurrence: JP)
  Receive Date: 20140929
  Receipt Date: 20140929
  Transmission Date: 20150326
  Serious: Yes (Hospitalization)
  Sender: FDA-Public Use
  Company Number: JP-PFIZER INC-2014263857

PATIENT
  Age: 57 Year
  Sex: Male
  Weight: 70 kg

DRUGS (10)
  1. GASLON N [Concomitant]
  2. TRANEXAMIC ACID. [Concomitant]
     Active Substance: TRANEXAMIC ACID
  3. TEGRETOL [Suspect]
     Active Substance: CARBAMAZEPINE
     Indication: PAIN
     Dosage: 1 DF, 3X/DAY
     Route: 048
     Dates: start: 201406
  4. HYPEN [Suspect]
     Active Substance: ETODOLAC
     Indication: PAIN
     Dosage: 200 MG, 2X/DAY
     Route: 048
     Dates: start: 201407
  5. GLACTIV [Concomitant]
     Active Substance: SITAGLIPTIN
  6. CARBOCISTEINE [Concomitant]
     Active Substance: CARBOCYSTEINE
  7. LYRICA [Suspect]
     Active Substance: PREGABALIN
     Indication: DIABETIC NEUROPATHY
     Dosage: UNK
     Route: 048
     Dates: start: 20140627
  8. LOXOPROFEN NA [Concomitant]
     Active Substance: LOXOPROFEN SODIUM
  9. MECOBALAMIN [Concomitant]
     Active Substance: METHYLCOBALAMIN
     Route: 048
  10. METGLUCO [Concomitant]
     Active Substance: METFORMIN HYDROCHLORIDE
     Route: 048

REACTIONS (2)
  - Erythema [Unknown]
  - Rash [Unknown]

NARRATIVE: CASE EVENT DATE: 20140816
